FAERS Safety Report 23349244 (Version 4)
Quarter: 2024Q1

REPORT INFORMATION
  Report Type: Spontaneous
  Country: US (occurrence: US)
  Receive Date: 20231229
  Receipt Date: 20240304
  Transmission Date: 20240409
  Serious: Yes (Other)
  Sender: FDA-Public Use
  Company Number: US-SA-SAC20231222001207

PATIENT
  Age: 72 Year
  Sex: Female

DRUGS (30)
  1. DUPIXENT [Suspect]
     Active Substance: DUPILUMAB
     Indication: Dermatitis atopic
     Dosage: 300 MG, QOW
     Route: 058
     Dates: start: 20231107
  2. ASPIRIN [Concomitant]
     Active Substance: ASPIRIN
     Dosage: UNK
  3. CALCIUM CITRATE [Concomitant]
     Active Substance: CALCIUM CITRATE
     Dosage: UNK
     Route: 065
  4. CARVEDILOL [Concomitant]
     Active Substance: CARVEDILOL
     Dosage: UNK
     Route: 065
  5. FUROSEMIDE [Concomitant]
     Active Substance: FUROSEMIDE
     Dosage: UNK
     Route: 065
  6. HYDROCODONE [Concomitant]
     Active Substance: HYDROCODONE
     Dosage: UNK
     Route: 065
  7. INGREZZA [Concomitant]
     Active Substance: VALBENAZINE
     Dosage: UNK
     Route: 065
  8. IRON [Concomitant]
     Active Substance: IRON
     Dosage: UNK
     Route: 065
  9. JANUVIA [Concomitant]
     Active Substance: SITAGLIPTIN PHOSPHATE
     Dosage: UNK
     Route: 065
  10. LYRICA [Concomitant]
     Active Substance: PREGABALIN
     Dosage: UNK
     Route: 065
  11. MAGNESIUM [Concomitant]
     Active Substance: MAGNESIUM
     Dosage: UNK
     Route: 065
  12. VITAMINS NOS [Concomitant]
     Active Substance: VITAMINS
     Dosage: UNK
     Route: 065
  13. NAMZARIC [Concomitant]
     Active Substance: DONEPEZIL HYDROCHLORIDE\MEMANTINE HYDROCHLORIDE
     Dosage: UNK
     Route: 065
  14. POTASSIUM CHLORIDE [Concomitant]
     Active Substance: POTASSIUM CHLORIDE
     Dosage: UNK
     Route: 065
  15. RYTARY [Concomitant]
     Active Substance: CARBIDOPA\LEVODOPA
     Dosage: UNK
     Route: 065
  16. ZYRTEC-D [Concomitant]
     Active Substance: CETIRIZINE HYDROCHLORIDE\PSEUDOEPHEDRINE HYDROCHLORIDE
     Dosage: UNK
     Route: 065
  17. CRESTOR [Concomitant]
     Active Substance: ROSUVASTATIN CALCIUM
     Dosage: UNK
     Route: 065
  18. LINZESS [Concomitant]
     Active Substance: LINACLOTIDE
     Dosage: UNK
     Route: 065
  19. DULOXETINE HYDROCHLORIDE [Concomitant]
     Active Substance: DULOXETINE HYDROCHLORIDE
     Dosage: UNK
     Route: 065
  20. METFORMIN HYDROCHLORIDE [Concomitant]
     Active Substance: METFORMIN HYDROCHLORIDE
     Dosage: UNK
     Route: 065
  21. CLONAZEPAM [Concomitant]
     Active Substance: CLONAZEPAM
     Dosage: UNK
     Route: 065
  22. GABAPENTIN [Concomitant]
     Active Substance: GABAPENTIN
     Dosage: UNK
     Route: 065
  23. MONTELUKAST SODIUM [Concomitant]
     Active Substance: MONTELUKAST SODIUM
     Dosage: UNK
     Route: 065
  24. PENTOXIFYLLINE [Concomitant]
     Active Substance: PENTOXIFYLLINE
     Dosage: UNK
     Route: 065
  25. SYNTHROID [Concomitant]
     Active Substance: LEVOTHYROXINE SODIUM
     Dosage: UNK
     Route: 065
  26. DEXAMETHASONE [Concomitant]
     Active Substance: DEXAMETHASONE
     Dosage: UNK
     Route: 065
  27. NYSTATIN [Concomitant]
     Active Substance: NYSTATIN
     Dosage: UNK
     Route: 065
  28. TRIAMCINOLONE ACETONIDE [Concomitant]
     Active Substance: TRIAMCINOLONE ACETONIDE
     Dosage: UNK
     Route: 065
  29. TIZANIDINE HYDROCHLORIDE [Concomitant]
     Active Substance: TIZANIDINE HYDROCHLORIDE
     Dosage: UNK
     Route: 065
  30. AZITHROMYCIN [Concomitant]
     Active Substance: AZITHROMYCIN
     Dosage: UNK
     Route: 065

REACTIONS (3)
  - Parkinson^s disease [Recovered/Resolved]
  - Neuralgia [Not Recovered/Not Resolved]
  - Arthralgia [Not Recovered/Not Resolved]

NARRATIVE: CASE EVENT DATE: 20230101
